FAERS Safety Report 19945756 (Version 3)
Quarter: 2022Q2

REPORT INFORMATION
  Report Type: Spontaneous
  Country: IN (occurrence: IN)
  Receive Date: 20211012
  Receipt Date: 20220405
  Transmission Date: 20220721
  Serious: Yes (Death, Other)
  Sender: FDA-Public Use
  Company Number: IN-PFIZER INC-2021037735

PATIENT
  Age: 60 Year
  Sex: Male

DRUGS (6)
  1. SUTENT [Suspect]
     Active Substance: SUNITINIB MALATE
     Indication: Metastatic renal cell carcinoma
     Dosage: 50 MG, CYCLIC (ONCE DAILY D1-D28, THEN 2 WEEKS OFF)
     Route: 048
     Dates: start: 20200425
  2. SUTENT [Suspect]
     Active Substance: SUNITINIB MALATE
     Dosage: 37.5 MG, CYCLIC (ONCE DAILY FOR 2 WEEKS ON AND 1 WEEK OFF)
     Dates: end: 20210701
  3. SUTENT [Suspect]
     Active Substance: SUNITINIB MALATE
     Dosage: 37.5 MG
     Dates: start: 20211003
  4. ONDEM [Concomitant]
     Dosage: 8 MG, 2X/DAY
  5. EMIZOF [Concomitant]
     Dosage: 0.5 MG
  6. PREGABALIN [Concomitant]
     Active Substance: PREGABALIN

REACTIONS (2)
  - Death [Fatal]
  - Pleural effusion [Unknown]

NARRATIVE: CASE EVENT DATE: 20220214
